FAERS Safety Report 6689924-2 (Version None)
Quarter: 2010Q2

REPORT INFORMATION
  Report Type: 
  Country: None (occurrence: None)
  Receive Date: 20100421
  Receipt Date: 20100414
  Transmission Date: 20101027
  Serious: Yes (Other)
  Sender: FDA-Public Use
  Company Number: US-SANOFI-AVENTIS-2010SA021862

PATIENT

DRUGS (2)
  1. MULTAQ [Suspect]
     Route: 065
  2. NEBIVOLOL [Suspect]
     Route: 065

REACTIONS (2)
  - CONDITION AGGRAVATED [None]
  - MACULAR DEGENERATION [None]
